FAERS Safety Report 15335484 (Version 2)
Quarter: 2018Q3

REPORT INFORMATION
  Report Type: Spontaneous
  Country: JP (occurrence: JP)
  Receive Date: 20180830
  Receipt Date: 20180914
  Transmission Date: 20181010
  Serious: Yes (Hospitalization)
  Sender: FDA-Public Use
  Company Number: JP-ASTRAZENECA-2018SF02565

PATIENT
  Age: 988 Month
  Sex: Female

DRUGS (13)
  1. NIFEDIPINE. [Concomitant]
     Active Substance: NIFEDIPINE
     Indication: HYPERTENSION
     Route: 048
  2. NEXIUM [Suspect]
     Active Substance: ESOMEPRAZOLE MAGNESIUM
     Indication: GASTROOESOPHAGEAL REFLUX DISEASE
     Route: 048
     Dates: start: 20141017, end: 20180720
  3. IRBETAN [Concomitant]
     Active Substance: IRBESARTAN
     Route: 048
  4. TENORMIN [Concomitant]
     Active Substance: ATENOLOL
     Indication: HYPERTENSION
     Route: 048
  5. BULKOSE [Concomitant]
     Route: 048
     Dates: start: 20180302
  6. SODIUM VALPROATE SR [Concomitant]
     Route: 048
  7. CALONAL [Concomitant]
     Active Substance: ACETAMINOPHEN
     Route: 048
  8. WYPAX [Concomitant]
     Active Substance: LORAZEPAM
     Route: 048
  9. GASCON [Concomitant]
     Active Substance: DIMETHICONE
     Route: 048
  10. NEXIUM [Suspect]
     Active Substance: ESOMEPRAZOLE MAGNESIUM
     Indication: GASTROOESOPHAGEAL REFLUX DISEASE
     Dosage: DOSE UNKNOWN
     Route: 048
     Dates: start: 20140715, end: 20140715
  11. GABAPEN [Concomitant]
     Active Substance: GABAPENTIN
     Route: 048
  12. SENNA [Concomitant]
     Active Substance: SENNA LEAF\SENNOSIDES\SENNOSIDES A AND B
     Dosage: EVERY DAY
     Route: 048
  13. COLONEL [Concomitant]
     Active Substance: CALCIUM POLYCARBOPHIL
     Route: 048

REACTIONS (6)
  - Nausea [Recovered/Resolved]
  - Feeling abnormal [Unknown]
  - Shock [Recovered/Resolved]
  - Dizziness [Recovered/Resolved]
  - Asthenia [Recovered/Resolved]
  - Hyponatraemia [Recovering/Resolving]

NARRATIVE: CASE EVENT DATE: 20140715
